FAERS Safety Report 12972888 (Version 1)
Quarter: 2016Q4

REPORT INFORMATION
  Report Type: Spontaneous
  Country: US (occurrence: US)
  Receive Date: 20161124
  Receipt Date: 20161124
  Transmission Date: 20170207
  Serious: No
  Sender: FDA-Public Use
  Company Number: US-PFIZER INC-2016543850

PATIENT
  Age: 60 Year
  Sex: Female

DRUGS (1)
  1. FLAGYL [Suspect]
     Active Substance: METRONIDAZOLE\METRONIDAZOLE HYDROCHLORIDE
     Dosage: UNK

REACTIONS (5)
  - Flatulence [Unknown]
  - Drug hypersensitivity [Unknown]
  - Vomiting [Unknown]
  - Gastrointestinal pain [Unknown]
  - Drug tolerance [Unknown]

NARRATIVE: CASE EVENT DATE: 20150504
